FAERS Safety Report 9235560 (Version 1)
Quarter: 2013Q1

REPORT INFORMATION
  Report Type: Spontaneous
  Country: US (occurrence: None)
  Receive Date: 20121031
  Receipt Date: 20121031
  Transmission Date: 20140127
  Serious: Yes (Other)
  Sender: FDA-Public Use
  Company Number: PHEH2012US015014

PATIENT
  Age: 49 Year
  Sex: Female
  Weight: 91.2 kg

DRUGS (5)
  1. GILENYA (FTY) CAPSULE, 0.5MG [Suspect]
     Indication: RELAPSING-REMITTING MULTIPLE SCLEROSIS
     Route: 048
     Dates: start: 20110303
  2. VITAMIN D (ERGOCALCIFEROL) [Concomitant]
  3. FOLIC ACID (FOLIC ACID) [Concomitant]
  4. B COMPLEX (NICOTINAMIDE, PYRIDOXINE HYDROCHLORIDE, RIBOFLAVIN, THIAMINE HYDROCHLORIDE) [Concomitant]
  5. FISH OIL (FISH OIL) [Concomitant]

REACTIONS (1)
  - Gamma-glutamyltransferase increased [None]
